FAERS Safety Report 5337188-4 (Version None)
Quarter: 2007Q2

REPORT INFORMATION
  Report Type: 
  Country: None (occurrence: None)
  Receive Date: 20070529
  Receipt Date: 20070515
  Transmission Date: 20071010
  Serious: Yes (Hospitalization, Other)
  Sender: FDA-Public Use
  Company Number: US-ELI_LILLY_AND_COMPANY-US200705003948

PATIENT
  Age: 59 Year
  Sex: Female

DRUGS (2)
  1. EVISTA [Suspect]
     Dosage: 60 MG, UNK
     Route: 048
     Dates: start: 20060301
  2. DIOVAN [Concomitant]
     Indication: HYPERTENSION

REACTIONS (5)
  - APPENDICITIS [None]
  - CARDIOMEGALY [None]
  - CORNEAL EROSION [None]
  - HEART RATE INCREASED [None]
  - INTESTINAL OBSTRUCTION [None]
